FAERS Safety Report 6416158-9 (Version None)
Quarter: 2009Q4

REPORT INFORMATION
  Report Type: 
  Country: None (occurrence: None)
  Receive Date: 20091022
  Receipt Date: 20091015
  Transmission Date: 20100525
  Serious: Yes (Hospitalization)
  Sender: FDA-Public Use
  Company Number: 2009SP031202

PATIENT
  Sex: Male

DRUGS (1)
  1. REMERON [Suspect]
     Indication: DRUG USE FOR UNKNOWN INDICATION
     Dosage: 30 MG; PO
     Route: 048
     Dates: start: 20090901

REACTIONS (2)
  - COGNITIVE DISORDER [None]
  - DISTURBANCE IN ATTENTION [None]
